FAERS Safety Report 4910305-3 (Version None)
Quarter: 2006Q1

REPORT INFORMATION
  Report Type: 
  Country: None (occurrence: None)
  Receive Date: 20060209
  Receipt Date: 20060131
  Transmission Date: 20060701
  Serious: Yes (Hospitalization)
  Sender: FDA-Public Use
  Company Number: 2006BI001931

PATIENT
  Age: 63 Year
  Sex: Female

DRUGS (3)
  1. AVONEX LYOPHILIZED [Suspect]
     Dosage: SEE IMAGE
     Route: 030
     Dates: start: 19970101, end: 19970101
  2. AVONEX LYOPHILIZED [Suspect]
     Dosage: SEE IMAGE
     Route: 030
     Dates: start: 19970101, end: 20020101
  3. AVONEX LIQUID [Suspect]
     Indication: MULTIPLE SCLEROSIS
     Dosage: 30 UG, QW; IM
     Route: 030
     Dates: start: 20020101

REACTIONS (1)
  - BACK DISORDER [None]
